FAERS Safety Report 4879820-5 (Version None)
Quarter: 2006Q1

REPORT INFORMATION
  Report Type: 
  Country: None (occurrence: None)
  Receive Date: 20060113
  Receipt Date: 20060105
  Transmission Date: 20060701
  Serious: Yes (Life-Threatening)
  Sender: FDA-Public Use
  Company Number: JP-JNJFOC-20060100965

PATIENT
  Age: 55 Year
  Sex: Male

DRUGS (10)
  1. TAVANIC [Suspect]
     Route: 048
     Dates: start: 20051023, end: 20051113
  2. TOPALGIC [Suspect]
     Indication: PAIN
     Route: 048
     Dates: start: 20051009, end: 20051113
  3. POSACONAZOLE [Suspect]
     Route: 048
     Dates: start: 20051021, end: 20051115
  4. LAROXYL [Suspect]
     Indication: PAIN
     Route: 048
     Dates: start: 20050923, end: 20051113
  5. FORTUM [Suspect]
     Route: 042
     Dates: start: 20051025, end: 20051113
  6. NEURONTIN [Suspect]
     Indication: PAIN
     Route: 048
     Dates: start: 20050923, end: 20051113
  7. XANAX [Suspect]
     Indication: ANXIETY
     Route: 048
     Dates: start: 20051014, end: 20051113
  8. EFFEXOR [Suspect]
     Indication: DEPRESSION
     Route: 048
     Dates: start: 20051009, end: 20051113
  9. NEXIUM [Concomitant]
     Indication: PROPHYLAXIS
     Route: 048
     Dates: start: 20051007
  10. HEPARIN [Concomitant]
     Indication: PROPHYLAXIS
     Dates: start: 20050924

REACTIONS (3)
  - CYTOLYTIC HEPATITIS [None]
  - HEPATOSPLENIC CANDIDIASIS [None]
  - RENAL FAILURE [None]
